FAERS Safety Report 10708059 (Version 1)
Quarter: 2015Q1

REPORT INFORMATION
  Report Type: Spontaneous
  Country: US (occurrence: US)
  Receive Date: 20150113
  Receipt Date: 20150113
  Transmission Date: 20150721
  Serious: No
  Sender: FDA-Public Use
  Company Number: US-PFIZER INC-2015008888

PATIENT
  Sex: Female

DRUGS (1)
  1. DUAVEE [Suspect]
     Active Substance: BAZEDOXIFENE ACETATE\ESTROGENS, CONJUGATED
     Dosage: UNK

REACTIONS (6)
  - Dizziness [Unknown]
  - Abdominal pain [Unknown]
  - Abdominal discomfort [Unknown]
  - Bladder disorder [Unknown]
  - Muscle spasms [Unknown]
  - Diarrhoea [Unknown]
